FAERS Safety Report 8922933 (Version 1)
Quarter: 2012Q4

REPORT INFORMATION
  Report Type: Spontaneous
  Country: US (occurrence: None)
  Receive Date: 20121115
  Receipt Date: 20121115
  Transmission Date: 20130627
  Serious: Yes (Other)
  Sender: FDA-Public Use
  Company Number: KAD201211-000487

PATIENT
  Age: 65 Year
  Sex: Female
  Weight: 33.11 kg

DRUGS (5)
  1. RIBAVIRIN [Suspect]
     Dates: start: 20120903
  2. RIBAVIRIN [Suspect]
     Route: 048
  3. RIBAVIRIN [Suspect]
     Route: 048
  4. PEGASYS [Suspect]
     Route: 058
     Dates: start: 20120903
  5. PEGASYS [Suspect]
     Route: 058

REACTIONS (8)
  - Infection [None]
  - Full blood count decreased [None]
  - Urinary tract infection [None]
  - Anaemia [None]
  - Nausea [None]
  - Chest pain [None]
  - Fatigue [None]
  - Weight decreased [None]
